FAERS Safety Report 5779759-7 (Version None)
Quarter: 2008Q2

REPORT INFORMATION
  Report Type: 
  Country: None (occurrence: None)
  Receive Date: 20080617
  Receipt Date: 20080605
  Transmission Date: 20081010
  Serious: Yes (Hospitalization)
  Sender: FDA-Public Use
  Company Number: 2008AL006455

PATIENT
  Age: 70 Year
  Sex: Female
  Weight: 51.4 kg

DRUGS (6)
  1. METFORMIN HYDROCHLORIDE [Suspect]
     Dosage: PO
     Route: 048
     Dates: end: 20030726
  2. LASOFOXIFENE [Concomitant]
  3. GLIBENCLAMIDE [Concomitant]
  4. OS-CAL [Concomitant]
  5. ISOSORBIDE DINITRATE [Concomitant]
  6. ASPIRIN [Concomitant]

REACTIONS (12)
  - ANOREXIA [None]
  - BACTERIAL INFECTION [None]
  - BRONCHIECTASIS [None]
  - GASTRITIS [None]
  - GASTROINTESTINAL DISORDER [None]
  - GIARDIASIS [None]
  - HEADACHE [None]
  - LOWER RESPIRATORY TRACT INFECTION [None]
  - PYREXIA [None]
  - UPPER RESPIRATORY TRACT INFECTION [None]
  - VIRAL INFECTION [None]
  - VOMITING [None]
